FAERS Safety Report 24304917 (Version 5)
Quarter: 2024Q4

REPORT INFORMATION
  Report Type: Spontaneous
  Country: US (occurrence: US)
  Receive Date: 20240911
  Receipt Date: 20241007
  Transmission Date: 20250114
  Serious: Yes (Hospitalization)
  Sender: ROCHE
  Company Number: US-ROCHE-10000076568

PATIENT
  Age: 73 Year
  Sex: Male

DRUGS (1)
  1. ACTEMRA ACTPEN [Suspect]
     Active Substance: TOCILIZUMAB
     Indication: Rheumatoid arthritis
     Dosage: 162MG/0.9ML
     Route: 058

REACTIONS (6)
  - Productive cough [Unknown]
  - Chest pain [Unknown]
  - Pain in extremity [Unknown]
  - Balance disorder [Unknown]
  - Arthralgia [Unknown]
  - Pneumonia [Unknown]
